FAERS Safety Report 5900932-9 (Version None)
Quarter: 2008Q3

REPORT INFORMATION
  Report Type: 
  Country: None (occurrence: None)
  Receive Date: 20080924
  Receipt Date: 20080918
  Transmission Date: 20090109
  Serious: Yes (Hospitalization)
  Sender: FDA-Public Use
  Company Number: 2008JP003978

PATIENT
  Age: 73 Year
  Sex: Male
  Weight: 60 kg

DRUGS (11)
  1. VESICARE [Suspect]
     Indication: HYPERTONIC BLADDER
     Dosage: 5 MG, UID/QD, ORAL
     Route: 048
     Dates: start: 20080305, end: 20080508
  2. URIEF [Concomitant]
  3. ADALAT [Concomitant]
  4. LASIX [Concomitant]
  5. ALDACTONE A FORMULATION [Concomitant]
  6. PLAVIX [Concomitant]
  7. CRESTOR [Concomitant]
  8. CARVEDILOL [Concomitant]
  9. ASPIRIN [Concomitant]
  10. PURSENNID (SENNOSIDE A+B) [Concomitant]
  11. AMARYL [Concomitant]

REACTIONS (1)
  - CEREBRAL INFARCTION [None]
